FAERS Safety Report 8881784 (Version 1)
Quarter: 2012Q4

REPORT INFORMATION
  Report Type: 
  Country: US (occurrence: US)
  Receive Date: 20121101
  Receipt Date: 20121101
  Transmission Date: 20130627
  Serious: No
  Sender: FDA-Public Use
  Company Number: US-PFIZER INC-2012269517

PATIENT
  Age: 85 Year
  Sex: Female

DRUGS (4)
  1. LYRICA [Suspect]
     Indication: MUSCULOSKELETAL DISORDER
     Dosage: 50 mg daily at night
     Route: 048
     Dates: start: 20121024, end: 20121026
  2. LYRICA [Suspect]
     Indication: MUSCLE TIGHTNESS
     Dosage: 50 mg, 2x/day, 50mg at noon and 50mg at night
     Route: 048
     Dates: start: 20121027
  3. LYRICA [Suspect]
     Indication: NUMBNESS IN FEET
  4. AMBIEN [Concomitant]
     Indication: SLEEP PROBLEM
     Dosage: UNK

REACTIONS (2)
  - Intentional drug misuse [Unknown]
  - Somnolence [Unknown]
